FAERS Safety Report 6076566-5 (Version None)
Quarter: 2009Q1

REPORT INFORMATION
  Report Type: 
  Country: None (occurrence: None)
  Receive Date: 20090213
  Receipt Date: 20090211
  Transmission Date: 20090719
  Serious: Yes (Death, Hospitalization, Other)
  Sender: FDA-Public Use
  Company Number: US-BRISTOL-MYERS SQUIBB COMPANY-14142970

PATIENT
  Age: 58 Year
  Sex: Female

DRUGS (12)
  1. CETUXIMAB [Suspect]
     Indication: NON-SMALL CELL LUNG CANCER
     Dosage: STARTED WITH 400MG/M2 (LOADING DOSE) ON 25FEB08,FOLLOWED BY WEEKLY CETUXIMAB 250 MG/32 FROM 06MAR08
     Dates: start: 20080306, end: 20080306
  2. RADIATION THERAPY [Suspect]
     Indication: NON-SMALL CELL LUNG CANCER
     Dosage: 1 DOSAGEFORM = 73.5 GY IN 35 FRACTIONS OVER 7 WEEKS. STARTED ON 06MAR08
     Dates: start: 20080404, end: 20080404
  3. ATACAND [Concomitant]
  4. PROMETRIUM [Concomitant]
  5. PREMARIN [Concomitant]
  6. FLOVENT [Concomitant]
     Route: 055
  7. FORADIL [Concomitant]
     Route: 055
  8. SPIRIVA [Concomitant]
     Route: 055
  9. COMBIVENT [Concomitant]
     Dosage: Q6H PRN
     Route: 055
  10. METAMUCIL [Concomitant]
  11. ASPIRIN [Concomitant]
  12. TYLENOL [Concomitant]

REACTIONS (7)
  - COUGH [None]
  - DYSPNOEA [None]
  - HAEMOPTYSIS [None]
  - HYPOXIA [None]
  - PNEUMONIA [None]
  - RESPIRATORY FAILURE [None]
  - SEPTIC SHOCK [None]
